FAERS Safety Report 5289390-8 (Version None)
Quarter: 2007Q2

REPORT INFORMATION
  Report Type: 
  Country: None (occurrence: None)
  Receive Date: 20070406
  Receipt Date: 20070326
  Transmission Date: 20071010
  Serious: Yes (Other)
  Sender: FDA-Public Use
  Company Number: PHBS2007FI05525

PATIENT
  Sex: Female

DRUGS (2)
  1. COZAAR [Concomitant]
  2. DICLOFENAC SODIUM [Suspect]
     Indication: PAIN

REACTIONS (1)
  - VITREOUS DETACHMENT [None]
